FAERS Safety Report 5629458-7 (Version None)
Quarter: 2008Q1

REPORT INFORMATION
  Report Type: 
  Country: None (occurrence: None)
  Receive Date: 20080218
  Receipt Date: 20080117
  Transmission Date: 20080703
  Serious: No
  Sender: FDA-Public Use
  Company Number: US-BAYER-200811551NA

PATIENT
  Sex: Female

DRUGS (3)
  1. AVELOX [Suspect]
     Indication: DRUG USE FOR UNKNOWN INDICATION
     Dosage: AS USED: 400 MG  UNIT DOSE: 400 MG
     Route: 048
     Dates: start: 20080115
  2. AVELOX [Suspect]
     Dosage: AS USED: 400 MG  UNIT DOSE: 400 MG
     Route: 048
     Dates: start: 20080117
  3. VITAMIN E [Suspect]

REACTIONS (2)
  - PRURITUS [None]
  - URTICARIA [None]
